FAERS Safety Report 5711586-9 (Version None)
Quarter: 2008Q2

REPORT INFORMATION
  Report Type: 
  Country: None (occurrence: None)
  Receive Date: 20080421
  Receipt Date: 20080411
  Transmission Date: 20081010
  Serious: Yes (Other)
  Sender: FDA-Public Use
  Company Number: AT-BRISTOL-MYERS SQUIBB COMPANY-14157663

PATIENT
  Age: 25 Year
  Sex: Female

DRUGS (1)
  1. HOLOXAN [Suspect]
     Dosage: 1 DOSAGE FORM=3G/M2.
     Route: 042
     Dates: start: 20080111, end: 20080113

REACTIONS (3)
  - ELECTROENCEPHALOGRAM ABNORMAL [None]
  - GENERAL PHYSICAL CONDITION ABNORMAL [None]
  - SOMNOLENCE [None]
